FAERS Safety Report 23241444 (Version 2)
Quarter: 2023Q4

REPORT INFORMATION
  Report Type: Report from Study
  Country: SA (occurrence: SA)
  Receive Date: 20231129
  Receipt Date: 20231208
  Transmission Date: 20240110
  Serious: Yes (Other)
  Sender: FDA-Public Use
  Company Number: SA-BIOGEN-2023BI01237513

PATIENT
  Age: 41 Year
  Sex: Female
  Weight: 47 kg

DRUGS (3)
  1. SPINRAZA [Suspect]
     Active Substance: NUSINERSEN
     Indication: Spinal muscular atrophy
     Dosage: LOADING DOSES (DAY 0, 13, 28)
     Route: 050
     Dates: start: 20211005, end: 2021
  2. SPINRAZA [Suspect]
     Active Substance: NUSINERSEN
     Dosage: LOADING DOSE (DAY 63)
     Route: 050
     Dates: start: 2021
  3. SPINRAZA [Suspect]
     Active Substance: NUSINERSEN
     Dosage: MAINTENANCE DOSE EVERY 4 MONTHS
     Route: 050
     Dates: start: 2022, end: 20231126

REACTIONS (2)
  - Deep vein thrombosis [Not Recovered/Not Resolved]
  - Motor dysfunction [Unknown]

NARRATIVE: CASE EVENT DATE: 20231120
